FAERS Safety Report 8522438-3 (Version None)
Quarter: 2012Q3

REPORT INFORMATION
  Report Type: 
  Country: None (occurrence: None)
  Receive Date: 20120719
  Receipt Date: 20120717
  Transmission Date: 20120928
  Serious: Yes (Other)
  Sender: FDA-Public Use
  Company Number: US-PFIZER INC-2012173288

PATIENT
  Age: 14 Year
  Sex: Male
  Weight: 77.098 kg

DRUGS (1)
  1. ZOLOFT [Suspect]
     Indication: DEPRESSION
     Dosage: 50 MG, DAILY

REACTIONS (2)
  - PERICARDITIS [None]
  - WEIGHT INCREASED [None]
